FAERS Safety Report 12381984 (Version 1)
Quarter: 2016Q2

REPORT INFORMATION
  Report Type: Spontaneous
  Country: US (occurrence: None)
  Receive Date: 20160517
  Receipt Date: 20160517
  Transmission Date: 20160815
  Serious: No
  Sender: FDA-Public Use
  Company Number: None

PATIENT
  Age: 26 Year
  Sex: Female
  Weight: 82 kg

DRUGS (1)
  1. MARCAINE [Suspect]
     Active Substance: BUPIVACAINE HYDROCHLORIDE
     Indication: ANALGESIC THERAPY
     Dosage: 1.3ML ONCE SPINAL INJECTION
     Dates: start: 20160515

REACTIONS (2)
  - Product measured potency issue [None]
  - Drug effect decreased [None]

NARRATIVE: CASE EVENT DATE: 20160515
